FAERS Safety Report 5144899-2 (Version None)
Quarter: 2006Q4

REPORT INFORMATION
  Report Type: 
  Country: None (occurrence: None)
  Receive Date: 20061107
  Receipt Date: 20060822
  Transmission Date: 20070319
  Serious: Yes (Hospitalization, Disabling)
  Sender: FDA-Public Use
  Company Number: PHRM2006FR02406

PATIENT
  Age: 29 Year
  Sex: Male
  Weight: 70 kg

DRUGS (5)
  1. VOLTAREN [Suspect]
     Indication: JOINT SPRAIN
     Dosage: 75 MG, BID
     Route: 048
     Dates: start: 20060228, end: 20060619
  2. INIPOMP [Concomitant]
     Indication: JOINT SPRAIN
     Dosage: UNK, UNK
     Route: 065
     Dates: start: 20060224, end: 20060619
  3. VOLTAREN [Suspect]
     Indication: JOINT SPRAIN
     Dosage: 2 APPLICATIONS/DAY
     Route: 061
     Dates: start: 20060228, end: 20060619
  4. VOLTAREN [Suspect]
     Dosage: UNK, UNK
     Route: 046
     Dates: start: 20060616, end: 20060616
  5. DOLIPRANE [Concomitant]
     Indication: JOINT SWELLING
     Dosage: 3 TAB/DAY
     Route: 048
     Dates: start: 20060323, end: 20060619

REACTIONS (11)
  - BURNING SENSATION [None]
  - COMPLEX REGIONAL PAIN SYNDROME [None]
  - ERYTHEMA [None]
  - MUSCULOSKELETAL STIFFNESS [None]
  - OEDEMA PERIPHERAL [None]
  - PETECHIAE [None]
  - PHYSICAL DISABILITY [None]
  - SKIN NECROSIS [None]
  - SKIN ULCER [None]
  - TENOSYNOVITIS [None]
  - VASCULAR RUPTURE [None]
